FAERS Safety Report 5209665-8 (Version None)
Quarter: 2007Q1

REPORT INFORMATION
  Report Type: 
  Country: None (occurrence: None)
  Receive Date: 20070116
  Receipt Date: 20061206
  Transmission Date: 20070707
  Serious: Yes (Death, Life-Threatening, Hospitalization, Disabling)
  Sender: FDA-Public Use
  Company Number: SE-PFIZER INC-2006133179

PATIENT
  Age: 61 Year
  Sex: Male

DRUGS (4)
  1. GENOTROPIN [Suspect]
     Indication: GROWTH HORMONE DEFICIENCY
     Dosage: DAILY DOSE:.5MG-FREQ:DAILY
     Route: 058
     Dates: start: 20051123, end: 20061026
  2. TESTOSTERONE [Concomitant]
  3. HYDROCORTISON [Concomitant]
     Dosage: DAILY DOSE:20MG
     Dates: start: 19670101
  4. LEVOTHYROXINE SODIUM [Concomitant]
     Dosage: DAILY DOSE:125MCG

REACTIONS (1)
  - GLIOBLASTOMA MULTIFORME [None]
